FAERS Safety Report 15761413 (Version 11)
Quarter: 2019Q3

REPORT INFORMATION
  Report Type: Spontaneous
  Country: FR (occurrence: FR)
  Receive Date: 20181226
  Receipt Date: 20190909
  Transmission Date: 20191004
  Serious: Yes (Hospitalization, Disabling, Other)
  Sender: FDA-Public Use
  Company Number: FR-MYLANLABS-2018M1095407

PATIENT
  Age: 28 Year
  Sex: Female
  Weight: 60 kg

DRUGS (21)
  1. ESTRADIOL. [Suspect]
     Active Substance: ESTRADIOL
     Indication: PRODUCT USED FOR UNKNOWN INDICATION
     Dosage: UNK
     Dates: start: 20070528
  2. CYPROTERONE [Suspect]
     Active Substance: CYPROTERONE
     Indication: ACNE
     Dosage: 0.5 UNK(? TABLET/D FOR 21 DAYS PER MONTH)
     Route: 048
     Dates: start: 20070528, end: 2009
  3. CYPROTERONE [Suspect]
     Active Substance: CYPROTERONE
     Dosage: 0.5 DF, QD FOR 21 DAYS PER MONTH
     Route: 048
     Dates: start: 20101221, end: 20110705
  4. ESTRADIOL. [Suspect]
     Active Substance: ESTRADIOL
     Dosage: 1 DOSAGE FORM, QD 1 TABLET/DAY FOR 21 DAYS PER MONTH
     Route: 048
     Dates: start: 20090705, end: 20170920
  5. ESTRADIOL. [Suspect]
     Active Substance: ESTRADIOL
     Dosage: 1 DOSAGE FORM(1 TABLET/D FOR 21 DAYS PER MONTH)
     Route: 048
  6. CYPROTERONE [Suspect]
     Active Substance: CYPROTERONE
     Dosage: 0.5 DF, QD(? TABLET/D FOR 21 DAYS PER MONTH)
     Route: 048
     Dates: start: 20140818, end: 20170510
  7. OROMONE [Suspect]
     Active Substance: ESTRADIOL
     Indication: CONTRACEPTION
     Dosage: UNK
     Route: 065
     Dates: start: 2008, end: 20170920
  8. CYPROTERONE [Suspect]
     Active Substance: CYPROTERONE
     Dosage: 1/2 TABLETS QD FOR 21 DAYS PER MONTH
     Route: 048
     Dates: start: 20090705, end: 20100820
  9. CYPROTERONE [Suspect]
     Active Substance: CYPROTERONE
     Dosage: 0.5 DF, QD(? TABLET/D FOR 21 DAYS PER MONTH)
     Route: 048
     Dates: start: 20161124
  10. CYPROTERONE [Suspect]
     Active Substance: CYPROTERONE
     Dosage: 0.5 DOSAGE FORM, QD
     Route: 048
     Dates: start: 2008
  11. CYPROTERONE [Suspect]
     Active Substance: CYPROTERONE
     Dosage: QD (1/2 TABLET FOR 1 DAYS PER MONTH)
     Dates: start: 20090705, end: 20100820
  12. CYPROTERONE [Suspect]
     Active Substance: CYPROTERONE
     Dosage: 0.5 DF QD(? TABLET/D FOR 21 DAYS PER MONTH)
     Route: 048
     Dates: start: 20130816, end: 20140818
  13. CYPROTERONE [Suspect]
     Active Substance: CYPROTERONE
     Dosage: 0.5 DF, QD FOR 21 DAYS PER MONTH
     Route: 048
     Dates: start: 20100715
  14. CYPROTERONE [Suspect]
     Active Substance: CYPROTERONE
     Indication: ALOPECIA
     Dosage: 2.5 DOSAGE FORM, QD (? TABLET/D FOR 21 DAYS PER MONTH)
     Dates: start: 2007
  15. CYPROTERONE [Suspect]
     Active Substance: CYPROTERONE
     Dosage: 0.5 DF, QD(? TABLET/D FOR 21 DAYS PER MONTH)
     Route: 048
     Dates: start: 20170510, end: 20170920
  16. ANDROCUR [Suspect]
     Active Substance: CYPROTERONE ACETATE
     Indication: ALOPECIA
     Dosage: UNK
     Route: 065
     Dates: start: 2008, end: 20170920
  17. ESTRADIOL. [Suspect]
     Active Substance: ESTRADIOL
     Dosage: 1 DF, QD 1 TABLET/D FOR 21 DAYS PER MONTH
     Route: 048
     Dates: start: 2008, end: 20170920
  18. CYPROTERONE ACETATE W/ETHINYLESTRADIOL [Suspect]
     Active Substance: CYPROTERONE ACETATE\ETHINYL ESTRADIOL
     Indication: ACNE
  19. CYPROTERONE [Suspect]
     Active Substance: CYPROTERONE
     Dosage: 1/2 TABLETS /D FOR 21 DAYS PER MONTH
     Route: 048
     Dates: start: 2008
  20. CYPROTERONE [Suspect]
     Active Substance: CYPROTERONE
     Dosage: 0.5 DF, QD FOR 21 DAYS PER MONTH
     Route: 048
     Dates: start: 20110705, end: 20110830
  21. CYPROTERONE ACETATE W/ETHINYLESTRADIOL [Suspect]
     Active Substance: CYPROTERONE ACETATE\ETHINYL ESTRADIOL
     Indication: ALOPECIA
     Dosage: 2 MG BEFORE 28-MAY-2007
     Route: 065

REACTIONS (41)
  - Joint range of motion decreased [Recovered/Resolved with Sequelae]
  - Brain herniation [Unknown]
  - Hemiparesis [Unknown]
  - Neck pain [Unknown]
  - Intracranial mass [Unknown]
  - Cognitive disorder [Unknown]
  - Paraesthesia [Not Recovered/Not Resolved]
  - Facial paralysis [Not Recovered/Not Resolved]
  - Partial seizures [Unknown]
  - Visual impairment [Unknown]
  - Weight increased [Not Recovered/Not Resolved]
  - Headache [Unknown]
  - Product dose omission [Unknown]
  - Hemiplegia [Not Recovered/Not Resolved]
  - Muscular weakness [Not Recovered/Not Resolved]
  - Dyskinesia [Unknown]
  - Disorientation [Unknown]
  - Gait disturbance [Not Recovered/Not Resolved]
  - Diplopia [Not Recovered/Not Resolved]
  - Executive dysfunction [Recovered/Resolved with Sequelae]
  - Mobility decreased [Recovered/Resolved with Sequelae]
  - Memory impairment [Unknown]
  - Hemiparaesthesia [Unknown]
  - Language disorder [Recovered/Resolved with Sequelae]
  - Meningioma [Not Recovered/Not Resolved]
  - Formication [Recovered/Resolved with Sequelae]
  - Fatigue [Not Recovered/Not Resolved]
  - Loss of personal independence in daily activities [Unknown]
  - Coordination abnormal [Not Recovered/Not Resolved]
  - Speech disorder [Unknown]
  - Product use in unapproved indication [Unknown]
  - Eye haematoma [Unknown]
  - Balance disorder [Not Recovered/Not Resolved]
  - Disturbance in attention [Recovered/Resolved with Sequelae]
  - Asthenia [Recovered/Resolved with Sequelae]
  - Aphasia [Unknown]
  - Hypoaesthesia [Unknown]
  - Pain [Unknown]
  - Off label use [Unknown]
  - Dysarthria [Not Recovered/Not Resolved]
  - Nervous system disorder [Unknown]

NARRATIVE: CASE EVENT DATE: 2017
